FAERS Safety Report 23481377 (Version 2)
Quarter: 2025Q3

REPORT INFORMATION
  Report Type: Spontaneous
  Country: EU (occurrence: EU)
  Receive Date: 20240205
  Receipt Date: 20250905
  Transmission Date: 20251021
  Serious: Yes (Hospitalization)
  Sender: MYLAN
  Company Number: None

PATIENT
  Age: 37 Year
  Sex: Female

DRUGS (24)
  1. ZOLPIDEM [Suspect]
     Active Substance: ZOLPIDEM TARTRATE
     Indication: Product used for unknown indication
     Dosage: 10 MILLIGRAM, QD,  IMV IN RECOVERY FROM COCAINE
     Dates: start: 2019
  2. ZOLPIDEM [Suspect]
     Active Substance: ZOLPIDEM TARTRATE
     Dosage: 10 MILLIGRAM, QD,  IMV IN RECOVERY FROM COCAINE
     Route: 065
     Dates: start: 2019
  3. ZOLPIDEM [Suspect]
     Active Substance: ZOLPIDEM TARTRATE
     Dosage: 10 MILLIGRAM, QD,  IMV IN RECOVERY FROM COCAINE
     Route: 065
     Dates: start: 2019
  4. ZOLPIDEM [Suspect]
     Active Substance: ZOLPIDEM TARTRATE
     Dosage: 10 MILLIGRAM, QD,  IMV IN RECOVERY FROM COCAINE
     Dates: start: 2019
  5. LYRICA [Suspect]
     Active Substance: PREGABALIN
     Indication: Product used for unknown indication
     Dates: start: 20231128, end: 20231128
  6. LYRICA [Suspect]
     Active Substance: PREGABALIN
     Dates: start: 20231128, end: 20231128
  7. LYRICA [Suspect]
     Active Substance: PREGABALIN
     Route: 065
     Dates: start: 20231128, end: 20231128
  8. LYRICA [Suspect]
     Active Substance: PREGABALIN
     Route: 065
     Dates: start: 20231128, end: 20231128
  9. LYRICA [Suspect]
     Active Substance: PREGABALIN
     Dosage: 600 MILLIGRAM, QD
     Dates: start: 2019
  10. LYRICA [Suspect]
     Active Substance: PREGABALIN
     Dosage: 600 MILLIGRAM, QD
     Dates: start: 2019
  11. LYRICA [Suspect]
     Active Substance: PREGABALIN
     Dosage: 600 MILLIGRAM, QD
     Route: 065
     Dates: start: 2019
  12. LYRICA [Suspect]
     Active Substance: PREGABALIN
     Dosage: 600 MILLIGRAM, QD
     Route: 065
     Dates: start: 2019
  13. BROMAZEPAM [Suspect]
     Active Substance: BROMAZEPAM
     Indication: Product used for unknown indication
     Dosage: 6 MILLIGRAM, QD
     Dates: start: 2019
  14. BROMAZEPAM [Suspect]
     Active Substance: BROMAZEPAM
     Dosage: 6 MILLIGRAM, QD
     Route: 065
     Dates: start: 2019
  15. BROMAZEPAM [Suspect]
     Active Substance: BROMAZEPAM
     Dosage: 6 MILLIGRAM, QD
     Route: 065
     Dates: start: 2019
  16. BROMAZEPAM [Suspect]
     Active Substance: BROMAZEPAM
     Dosage: 6 MILLIGRAM, QD
     Dates: start: 2019
  17. METHADONE [Suspect]
     Active Substance: METHADONE HYDROCHLORIDE
     Indication: Product used for unknown indication
     Dates: start: 20231128, end: 20231128
  18. METHADONE [Suspect]
     Active Substance: METHADONE HYDROCHLORIDE
     Route: 065
     Dates: start: 20231128, end: 20231128
  19. METHADONE [Suspect]
     Active Substance: METHADONE HYDROCHLORIDE
     Route: 065
     Dates: start: 20231128, end: 20231128
  20. METHADONE [Suspect]
     Active Substance: METHADONE HYDROCHLORIDE
     Dates: start: 20231128, end: 20231128
  21. COCAINE [Concomitant]
     Active Substance: COCAINE
     Dosage: 2 GRAM, QD
     Dates: start: 2002
  22. COCAINE [Concomitant]
     Active Substance: COCAINE
     Dosage: 2 GRAM, QD
     Route: 042
     Dates: start: 2002
  23. COCAINE [Concomitant]
     Active Substance: COCAINE
     Dosage: 2 GRAM, QD
     Route: 042
     Dates: start: 2002
  24. COCAINE [Concomitant]
     Active Substance: COCAINE
     Dosage: 2 GRAM, QD
     Dates: start: 2002

REACTIONS (4)
  - Coma [Recovered/Resolved]
  - Pneumonia aspiration [Recovering/Resolving]
  - Drug use disorder [Not Recovered/Not Resolved]
  - Substance use disorder [Not Recovered/Not Resolved]

NARRATIVE: CASE EVENT DATE: 20190101
